FAERS Safety Report 6454313-2 (Version None)
Quarter: 2009Q4

REPORT INFORMATION
  Report Type: 
  Country: None (occurrence: None)
  Receive Date: 20091124
  Receipt Date: 20091117
  Transmission Date: 20100525
  Serious: Yes (Death, Hospitalization)
  Sender: FDA-Public Use
  Company Number: US-ROCHE-669781

PATIENT
  Sex: Female
  Weight: 51 kg

DRUGS (3)
  1. CAPECITABINE [Suspect]
     Indication: GASTRIC CANCER
     Route: 048
     Dates: start: 20090708, end: 20091021
  2. OXALIPLATIN [Suspect]
     Indication: GASTRIC CANCER
     Route: 042
     Dates: start: 20090708, end: 20091021
  3. CETUXIMAB [Suspect]
     Indication: GASTRIC CANCER
     Route: 042
     Dates: start: 20090708, end: 20091021

REACTIONS (1)
  - SEPSIS [None]
